FAERS Safety Report 8420359-8 (Version None)
Quarter: 2012Q2

REPORT INFORMATION
  Report Type: 
  Country: None (occurrence: None)
  Receive Date: 20120607
  Receipt Date: 20120525
  Transmission Date: 20120825
  Serious: Yes (Other)
  Sender: FDA-Public Use
  Company Number: GB-TEVA-339785ISR

PATIENT
  Age: 22 Year
  Sex: Female

DRUGS (3)
  1. CLOMIPRAMINE HCL [Suspect]
     Indication: DEPRESSION
     Dosage: 1 X 25 MG QD, 1 X 50 MG QD
     Route: 048
     Dates: start: 20120131
  2. CLOMIPRAMINE HCL [Suspect]
     Indication: ANXIETY
  3. FERROUS FUMARATE [Concomitant]
     Indication: SERUM FERRITIN DECREASED
     Route: 048
     Dates: start: 20111209

REACTIONS (2)
  - HAEMATEMESIS [None]
  - VAGINAL HAEMORRHAGE [None]
